FAERS Safety Report 7909207-X (Version None)
Quarter: 2011Q4

REPORT INFORMATION
  Report Type: 
  Country: None (occurrence: None)
  Receive Date: 20111111
  Receipt Date: 20111103
  Transmission Date: 20120403
  Serious: Yes (Life-Threatening)
  Sender: FDA-Public Use
  Company Number: US-UCBSA-044777

PATIENT
  Age: 62 Year
  Sex: Male
  Weight: 92 kg

DRUGS (3)
  1. METHADONE HCL [Concomitant]
     Indication: PAIN
     Dosage: AT BEDTIME
     Dates: start: 20110825
  2. ROTIGOTINE [Suspect]
     Indication: RESTLESS LEGS SYNDROME
     Route: 062
     Dates: start: 20110922
  3. OXYCODONE HCL [Concomitant]
     Indication: PAIN
     Dosage: SINGLE DOSE:5-15 MG
     Dates: start: 20110825

REACTIONS (1)
  - SLEEP ATTACKS [None]
